FAERS Safety Report 6163386-6 (Version None)
Quarter: 2009Q2

REPORT INFORMATION
  Report Type: 
  Country: None (occurrence: None)
  Receive Date: 20090420
  Receipt Date: 20090420
  Transmission Date: 20091009
  Serious: No
  Sender: FDA-Public Use
  Company Number: None

PATIENT
  Age: 44 Year
  Sex: Male
  Weight: 101.2 kg

DRUGS (5)
  1. VARENICLINE [Suspect]
     Indication: EX-TOBACCO USER
     Dosage: 1 MG BID PO
     Route: 048
     Dates: start: 20071109, end: 20080619
  2. BACLOFEN [Concomitant]
  3. ENALAPRIL MALEATE [Concomitant]
  4. MORPHINE [Concomitant]
  5. OMEPRAZOLE [Concomitant]

REACTIONS (1)
  - DEPRESSION [None]
